FAERS Safety Report 5654632-3 (Version None)
Quarter: 2008Q1

REPORT INFORMATION
  Report Type: 
  Country: None (occurrence: None)
  Receive Date: 20080307
  Receipt Date: 20080227
  Transmission Date: 20080703
  Serious: Yes (Hospitalization)
  Sender: FDA-Public Use
  Company Number: JP-JNJFOC-20070604818

PATIENT
  Sex: Female
  Weight: 36 kg

DRUGS (22)
  1. REMICADE [Suspect]
     Route: 042
  2. REMICADE [Suspect]
     Route: 042
  3. REMICADE [Suspect]
     Route: 042
  4. REMICADE [Suspect]
     Route: 042
  5. REMICADE [Suspect]
     Route: 042
  6. REMICADE [Suspect]
     Route: 042
  7. REMICADE [Suspect]
     Route: 042
  8. REMICADE [Suspect]
     Route: 042
  9. REMICADE [Suspect]
     Route: 042
  10. REMICADE [Suspect]
     Indication: RHEUMATOID ARTHRITIS
     Route: 042
  11. RHEUMATREX [Suspect]
     Route: 048
  12. RHEUMATREX [Suspect]
     Indication: RHEUMATOID ARTHRITIS
     Route: 048
  13. PROGRAF [Suspect]
     Indication: RHEUMATOID ARTHRITIS
     Route: 048
  14. PREDNISONE TAB [Suspect]
     Indication: RHEUMATOID ARTHRITIS
  15. ENBREL [Concomitant]
     Indication: RHEUMATOID ARTHRITIS
     Route: 058
  16. ADRENAL HORMONE PREPARATIONS [Concomitant]
     Indication: RHEUMATOID ARTHRITIS
  17. VOLTAREN [Concomitant]
     Indication: RHEUMATOID ARTHRITIS
     Route: 048
  18. MUCOSTA [Concomitant]
     Route: 048
  19. BAYASPRIN [Concomitant]
     Route: 048
  20. PARIET [Concomitant]
     Route: 048
  21. BONALON [Concomitant]
     Route: 048
  22. BIOFERMIN [Concomitant]
     Route: 048

REACTIONS (1)
  - LISTERIA SEPSIS [None]
